FAERS Safety Report 18612631 (Version 1)
Quarter: 2020Q4

REPORT INFORMATION
  Report Type: Spontaneous
  Country: CN (occurrence: CN)
  Receive Date: 20201214
  Receipt Date: 20201214
  Transmission Date: 20210114
  Serious: Yes (Other)
  Sender: FDA-Public Use
  Company Number: CN-009507513-2012CHN004299

PATIENT
  Age: 33 Year
  Sex: Female
  Weight: 58 kg

DRUGS (1)
  1. DIPROSPAN [Suspect]
     Active Substance: BETAMETHASONE DIPROPIONATE\BETAMETHASONE SODIUM PHOSPHATE
     Indication: URTICARIA
     Dosage: 1 MILLILITER, QD
     Route: 030
     Dates: start: 20200526, end: 20200526

REACTIONS (9)
  - Dysstasia [Recovering/Resolving]
  - Gait inability [Recovering/Resolving]
  - Dizziness [Recovering/Resolving]
  - Pallor [Recovering/Resolving]
  - Listless [Recovering/Resolving]
  - Asthenia [Recovering/Resolving]
  - Hypoaesthesia [Recovering/Resolving]
  - Cold sweat [Recovering/Resolving]
  - Rash [Recovering/Resolving]

NARRATIVE: CASE EVENT DATE: 20200526
